FAERS Safety Report 15428038 (Version 2)
Quarter: 2018Q4

REPORT INFORMATION
  Report Type: Spontaneous
  Country: US (occurrence: US)
  Receive Date: 20180926
  Receipt Date: 20181220
  Transmission Date: 20190204
  Serious: No
  Sender: FDA-Public Use
  Company Number: US-PRINSTON PHARMACEUTICAL INC.-2018PRN00665

PATIENT
  Sex: Female
  Weight: 59.86 kg

DRUGS (11)
  1. LOSARTAN POTASSIUM. [Suspect]
     Active Substance: LOSARTAN POTASSIUM
     Dosage: UNK
  2. GLIMEPIRIDE. [Concomitant]
     Active Substance: GLIMEPIRIDE
  3. SPIRONOLACTONE. [Concomitant]
     Active Substance: SPIRONOLACTONE
  4. METOPROLOL TARTRATE. [Concomitant]
     Active Substance: METOPROLOL TARTRATE
  5. CLONAZEPAM. [Concomitant]
     Active Substance: CLONAZEPAM
  6. BABY ASPIRIN [Concomitant]
     Active Substance: ASPIRIN
  7. VALSARTAN. [Suspect]
     Active Substance: VALSARTAN
     Indication: HYPERTENSION
     Dosage: UNK UNK, 1X/DAY
     Route: 048
  8. DIGOX [Concomitant]
     Active Substance: DIGOXIN
  9. LEVOTHYROXINE. [Concomitant]
     Active Substance: LEVOTHYROXINE
  10. FUROSEMIDE. [Concomitant]
     Active Substance: FUROSEMIDE
  11. DILTIAZEM. [Concomitant]
     Active Substance: DILTIAZEM

REACTIONS (2)
  - Dyspepsia [Unknown]
  - Laboratory test abnormal [Recovered/Resolved]
